FAERS Safety Report 9946049 (Version 1)
Quarter: 2014Q1

REPORT INFORMATION
  Report Type: Spontaneous
  Country: US (occurrence: US)
  Receive Date: 20140303
  Receipt Date: 20140303
  Transmission Date: 20141002
  Serious: No
  Sender: FDA-Public Use
  Company Number: US-AMGEN-USASP2013068349

PATIENT
  Age: 19 Year
  Sex: Female
  Weight: 81.63 kg

DRUGS (1)
  1. ENBREL [Suspect]
     Indication: RHEUMATOID ARTHRITIS
     Dosage: 50 MG, QWEEK
     Route: 058
     Dates: start: 20130921

REACTIONS (1)
  - Injection site pain [Recovered/Resolved]
